FAERS Safety Report 24680819 (Version 3)
Quarter: 2025Q3

REPORT INFORMATION
  Report Type: Spontaneous
  Country: JP (occurrence: JP)
  Receive Date: 20241129
  Receipt Date: 20250810
  Transmission Date: 20251020
  Serious: Yes (Other)
  Sender: ALEXION PHARMACEUTICALS
  Company Number: JP-ASTRAZENECA-240133705_064320_P_1

PATIENT
  Age: 8 Decade
  Sex: Male
  Weight: 75 kg

DRUGS (4)
  1. ANDEXXA [Suspect]
     Active Substance: ANDEXANET ALFA
     Indication: Putamen haemorrhage
  2. ANDEXXA [Suspect]
     Active Substance: ANDEXANET ALFA
  3. EDOXABAN TOSYLATE [Concomitant]
     Active Substance: EDOXABAN TOSYLATE
     Dosage: 60 MILLIGRAM, QD
  4. EDOXABAN TOSYLATE [Concomitant]
     Active Substance: EDOXABAN TOSYLATE

REACTIONS (2)
  - Depressed level of consciousness [Recovered/Resolved]
  - Haemorrhage [Recovering/Resolving]
